FAERS Safety Report 18524920 (Version 2)
Quarter: 2020Q4

REPORT INFORMATION
  Report Type: Spontaneous
  Country: AR (occurrence: AR)
  Receive Date: 20201119
  Receipt Date: 20201222
  Transmission Date: 20210114
  Serious: Yes (Hospitalization, Other)
  Sender: FDA-Public Use
  Company Number: AR-009507513-2011ARG010864

PATIENT
  Age: 74 Year
  Sex: Male

DRUGS (6)
  1. ACENOCOUMAROL [Concomitant]
     Active Substance: ACENOCOUMAROL
     Indication: ANTICOAGULANT THERAPY
  2. DEXAMETHASONE. [Suspect]
     Active Substance: DEXAMETHASONE
     Indication: BLOOD PHOSPHORUS INCREASED
     Dosage: 2 MILLIGRAM DAY
     Route: 048
     Dates: start: 20190516, end: 201911
  3. ACENOCOUMAROL [Concomitant]
     Active Substance: ACENOCOUMAROL
     Indication: OEDEMA PERIPHERAL
  4. ACENOCOUMAROL [Concomitant]
     Active Substance: ACENOCOUMAROL
     Indication: PELVIC VENOUS THROMBOSIS
     Dosage: UNK
     Dates: start: 201901, end: 20191119
  5. PEMBROLIZUMAB. [Suspect]
     Active Substance: PEMBROLIZUMAB
     Indication: BLADDER CANCER
     Dosage: 200 MILLIGRAM,  EVERY 21 DAYS
     Dates: start: 20190517, end: 202001
  6. PEMBROLIZUMAB. [Suspect]
     Active Substance: PEMBROLIZUMAB
     Indication: METASTASES TO LIVER

REACTIONS (7)
  - Conjunctivitis [Recovered/Resolved]
  - Adrenal insufficiency [Recovered/Resolved]
  - Hepatic fibrosis [Unknown]
  - Skin toxicity [Recovered/Resolved]
  - Rash [Recovered/Resolved]
  - Osteoarthritis [Recovered/Resolved]
  - Hepatic calcification [Unknown]

NARRATIVE: CASE EVENT DATE: 201912
